FAERS Safety Report 23764908 (Version 1)
Quarter: 2024Q2

REPORT INFORMATION
  Report Type: Spontaneous
  Country: US (occurrence: US)
  Receive Date: 20240420
  Receipt Date: 20240420
  Transmission Date: 20240717
  Serious: No
  Sender: FDA-Public Use
  Company Number: US-IPSEN Group, Research and Development-2024-06504

PATIENT
  Sex: Male

DRUGS (2)
  1. SOMATULINE DEPOT [Suspect]
     Active Substance: LANREOTIDE ACETATE
     Indication: Acromegaly
     Dosage: 120 MG/0.5 ML, VIA DEEPLY INTO THE SUBCUTANEOUS TISSUE OF THE GLUTEUS
     Route: 050
     Dates: start: 20200506
  2. SOMAVERT [Concomitant]
     Active Substance: PEGVISOMANT

REACTIONS (4)
  - Constipation [Unknown]
  - Diarrhoea [Unknown]
  - Alopecia [Unknown]
  - Weight decreased [Unknown]
